FAERS Safety Report 6429816-7 (Version None)
Quarter: 2009Q4

REPORT INFORMATION
  Report Type: 
  Country: None (occurrence: None)
  Receive Date: 20091106
  Receipt Date: 20091019
  Transmission Date: 20100525
  Serious: Yes (Death, Other)
  Sender: FDA-Public Use
  Company Number: 2009BM000219

PATIENT
  Age: 15 Year
  Sex: Female
  Weight: 17 kg

DRUGS (9)
  1. NAGLAZYME [Suspect]
     Indication: MUCOPOLYSACCHARIDOSIS VI
     Dosage: 20 MG;QW;IVDRIP
     Route: 041
     Dates: start: 20020704, end: 20090730
  2. OMEPRAZOLE [Concomitant]
  3. MONTELUKAST SODIUM [Concomitant]
  4. NITROFURANTOIN [Concomitant]
  5. PENTAVITE [Concomitant]
  6. BUDESONIDE [Concomitant]
  7. FLUTICASONE [Concomitant]
  8. LATANOPROST [Concomitant]
  9. PARAFFIN [Concomitant]

REACTIONS (7)
  - ABDOMINAL DISTENSION [None]
  - ADHESION [None]
  - BACK PAIN [None]
  - DISCOMFORT [None]
  - LARGE INTESTINAL OBSTRUCTION [None]
  - MALAISE [None]
  - SMALL INTESTINAL OBSTRUCTION [None]
